FAERS Safety Report 4282695-9 (Version None)
Quarter: 2004Q1

REPORT INFORMATION
  Report Type: 
  Country: None (occurrence: None)
  Receive Date: 20040130
  Receipt Date: 20030303
  Transmission Date: 20041129
  Serious: No
  Sender: FDA-Public Use
  Company Number: US-BRISTOL-MYERS SQUIBB COMPANY-12201208

PATIENT
  Age: 49 Year
  Sex: Female
  Weight: 61 kg

DRUGS (4)
  1. SERZONE [Suspect]
     Indication: DEPRESSION
     Dosage: 150MG HS,INCREASED TO 300MG HS;THEN APPROX 1 MO AGO 225MG HS X3WKS,150MG HS LAST 3-4 NIGHTS
     Route: 048
  2. SERZONE [Suspect]
     Indication: SLEEP DISORDER
     Dosage: 150MG HS,INCREASED TO 300MG HS;THEN APPROX 1 MO AGO 225MG HS X3WKS,150MG HS LAST 3-4 NIGHTS
     Route: 048
  3. SYNTHROID [Concomitant]
  4. PRILOSEC [Concomitant]

REACTIONS (3)
  - INSOMNIA [None]
  - RESTLESS LEGS SYNDROME [None]
  - RESTLESSNESS [None]
